FAERS Safety Report 21563721 (Version 4)
Quarter: 2022Q4

REPORT INFORMATION
  Report Type: Report from Study
  Country: US (occurrence: US)
  Receive Date: 20221108
  Receipt Date: 20221220
  Transmission Date: 20230113
  Serious: Yes (Other)
  Sender: FDA-Public Use
  Company Number: US-TAKEDA-2022TUS081730

PATIENT
  Sex: Female
  Weight: 67 kg

DRUGS (26)
  1. HUMAN IMMUNOGLOBULIN G [Suspect]
     Active Substance: HUMAN IMMUNOGLOBULIN G
     Indication: Chronic inflammatory demyelinating polyradiculoneuropathy
     Dosage: 1000 MILLIGRAM, Q4WEEKS
     Route: 042
     Dates: start: 20221025
  2. HUMAN IMMUNOGLOBULIN G [Suspect]
     Active Substance: HUMAN IMMUNOGLOBULIN G
     Indication: Chronic inflammatory demyelinating polyradiculoneuropathy
     Dosage: 1000 MILLIGRAM, Q4WEEKS
     Route: 042
     Dates: start: 20221025
  3. HUMAN IMMUNOGLOBULIN G [Suspect]
     Active Substance: HUMAN IMMUNOGLOBULIN G
     Indication: Rheumatoid arthritis
     Dosage: 1000 MILLIGRAM/KILOGRAM, Q4WEEKS
     Route: 042
     Dates: start: 20221026
  4. HUMAN IMMUNOGLOBULIN G [Suspect]
     Active Substance: HUMAN IMMUNOGLOBULIN G
     Indication: Rheumatoid arthritis
     Dosage: 1000 MILLIGRAM/KILOGRAM, Q4WEEKS
     Route: 042
     Dates: start: 20221026
  5. PRIVIGEN [Suspect]
     Active Substance: HUMAN IMMUNOGLOBULIN G
     Indication: Product used for unknown indication
     Dosage: UNK
     Route: 065
  6. BENADRYL [Suspect]
     Active Substance: DIPHENHYDRAMINE HYDROCHLORIDE
     Indication: Product used for unknown indication
     Dosage: UNK
     Route: 065
  7. EPINEPHRINE [Concomitant]
     Active Substance: EPINEPHRINE
  8. DIPHENHYDRAMINE [Concomitant]
     Active Substance: DIPHENHYDRAMINE
  9. VITAMIN D3 [Concomitant]
     Active Substance: CHOLECALCIFEROL
  10. SODIUM CHLORIDE [Concomitant]
     Active Substance: SODIUM CHLORIDE
  11. HYDROXYCHLOROQUINE SULFATE [Concomitant]
     Active Substance: HYDROXYCHLOROQUINE SULFATE
  12. PREDNISONE [Concomitant]
     Active Substance: PREDNISONE
  13. ACETAMINOPHEN [Concomitant]
     Active Substance: ACETAMINOPHEN
  14. HEPARIN [Concomitant]
     Active Substance: HEPARIN SODIUM
  15. LYRICA [Concomitant]
     Active Substance: PREGABALIN
  16. MAGNESIUM [Concomitant]
     Active Substance: MAGNESIUM
  17. Lmx [Concomitant]
  18. FOLATE SODIUM [Concomitant]
     Active Substance: FOLATE SODIUM
  19. VITAMIN D2 [Concomitant]
     Active Substance: ERGOCALCIFEROL
  20. DIPHENHYDRAMINE HYDROCHLORIDE [Concomitant]
     Active Substance: DIPHENHYDRAMINE HYDROCHLORIDE
  21. ZINC [Concomitant]
     Active Substance: ZINC
  22. VITAMIN K [Concomitant]
     Active Substance: PHYTONADIONE
  23. MENAQUINONE 5 [Concomitant]
     Active Substance: MENAQUINONE 5
  24. FOLIC ACID [Concomitant]
     Active Substance: FOLIC ACID
  25. LIDOCAINE [Concomitant]
     Active Substance: LIDOCAINE
  26. METHOTREXATE [Concomitant]
     Active Substance: METHOTREXATE

REACTIONS (9)
  - Rheumatoid arthritis [Unknown]
  - Generalised oedema [Unknown]
  - Restless legs syndrome [Unknown]
  - Drug hypersensitivity [Unknown]
  - Somnolence [Unknown]
  - Rash pruritic [Unknown]
  - Rash [Unknown]
  - Paraesthesia [Unknown]
  - Headache [Unknown]
